FAERS Safety Report 10071072 (Version 3)
Quarter: 2014Q2

REPORT INFORMATION
  Report Type: Spontaneous
  Country: JP (occurrence: JP)
  Receive Date: 20140410
  Receipt Date: 20140425
  Transmission Date: 20141212
  Serious: Yes (Death, Hospitalization, Other)
  Sender: FDA-Public Use
  Company Number: JP-ELI_LILLY_AND_COMPANY-JP201403009192

PATIENT
  Age: 56 Year
  Sex: Male
  Weight: 70.2 kg

DRUGS (3)
  1. GEMZAR [Suspect]
     Indication: PERIPHERAL T-CELL LYMPHOMA UNSPECIFIED
     Dosage: 1800 MG, 3-CYCLE, ON DAY 1, 8 AND 15 OF 28-DAY CYCLE
     Route: 042
     Dates: start: 20140107, end: 20140314
  2. DEXAMETHASONE [Concomitant]
     Indication: PERIPHERAL T-CELL LYMPHOMA UNSPECIFIED
     Dosage: 8 MG, ON DAY 1, 8 AND 15 OF 28-DAY CYCLE
     Route: 048
     Dates: start: 20140107, end: 20140314
  3. GRANULOCYTE COLONY-STIMULATING FACTOR NOS [Concomitant]
     Indication: PROPHYLAXIS
     Dosage: UNK
     Route: 065
     Dates: start: 20140204

REACTIONS (8)
  - Pulmonary alveolar haemorrhage [Fatal]
  - Disseminated intravascular coagulation [Fatal]
  - Cerebral haemorrhage [Fatal]
  - Pulmonary alveolar haemorrhage [Recovered/Resolved]
  - Platelet count decreased [Unknown]
  - Haemoglobin decreased [Unknown]
  - Pyrexia [Unknown]
  - White blood cell count decreased [Unknown]
